FAERS Safety Report 9022089 (Version 1)
Quarter: 2013Q1

REPORT INFORMATION
  Report Type: Spontaneous
  Country: FR (occurrence: FR)
  Receive Date: 20130118
  Receipt Date: 20130118
  Transmission Date: 20140127
  Serious: Yes (Death)
  Sender: FDA-Public Use
  Company Number: FR-GLAXOSMITHKLINE-B0857077A

PATIENT
  Age: 66 None
  Sex: Female

DRUGS (7)
  1. ZOPHREN [Suspect]
     Indication: PREMEDICATION
     Dosage: 8MG CYCLIC
     Route: 042
     Dates: start: 20120704, end: 20120829
  2. RANIPLEX [Suspect]
     Indication: PREMEDICATION
     Dosage: 50MG CYCLIC
     Route: 042
     Dates: start: 20120704, end: 20120829
  3. PACLITAXEL [Suspect]
     Indication: BREAST CANCER
     Dosage: 108MG CYCLIC
     Route: 042
     Dates: start: 20120704, end: 20120829
  4. AVASTIN (BEVACIZUMAB) [Suspect]
     Indication: BREAST CANCER
     Dosage: 450MG CYCLIC
     Route: 042
     Dates: start: 20120816, end: 20120829
  5. SOLUMEDROL(METHYLPREDNISOLONE SODIUM SUCCINATE) INFUSION [Suspect]
     Indication: PREMEDICATION
     Dosage: 60MG CYCLIC
     Route: 042
     Dates: start: 20120704, end: 20120829
  6. DUROGESIC [Suspect]
     Indication: PRODUCT USED FOR UNKNOWN INDICATION
     Route: 062
  7. LASILIX [Suspect]
     Indication: PRODUCT USED FOR UNKNOWN INDICATION
     Dosage: 20MG PER DAY
     Route: 048
     Dates: start: 20120801, end: 20120811

REACTIONS (2)
  - Hepatitis [Fatal]
  - Hepatic encephalopathy [Fatal]
